FAERS Safety Report 9389003 (Version 1)
Quarter: 2013Q3

REPORT INFORMATION
  Report Type: Spontaneous
  Country: FR (occurrence: FR)
  Receive Date: 20130708
  Receipt Date: 20130708
  Transmission Date: 20140515
  Serious: Yes (Hospitalization)
  Sender: FDA-Public Use
  Company Number: FR-PFIZER INC-2013196342

PATIENT
  Age: 50 Year
  Sex: Male

DRUGS (6)
  1. SOLU-MEDROL [Suspect]
     Indication: SCIATICA
     Dosage: 2X120
     Route: 030
     Dates: start: 20121227, end: 20121228
  2. SOLU-MEDROL [Suspect]
     Dosage: 2X80
     Route: 030
     Dates: start: 20121229, end: 20121230
  3. SOLU-MEDROL [Suspect]
     Dosage: 2X40
     Route: 030
     Dates: start: 20121231, end: 20130101
  4. BI-PROFENID [Suspect]
     Indication: SCIATICA
     Dosage: 100 MG (1DF), 2X/DAY
     Route: 048
     Dates: start: 20130103, end: 20130109
  5. VOLTARENE [Suspect]
     Indication: SCIATICA
     Dosage: 75 MG (1DF), 2X/DAY
     Route: 048
     Dates: start: 20130115, end: 20130208
  6. KARDEGIC [Concomitant]
     Dosage: UNK

REACTIONS (4)
  - Dermo-hypodermitis [Recovered/Resolved]
  - Necrotising fasciitis [Recovered/Resolved]
  - Respiratory tract congestion [Unknown]
  - Glucose tolerance impaired [Unknown]
